FAERS Safety Report 7650047-7 (Version None)
Quarter: 2011Q3

REPORT INFORMATION
  Report Type: 
  Country: None (occurrence: None)
  Receive Date: 20110802
  Receipt Date: 20110802
  Transmission Date: 20111222
  Serious: No
  Sender: FDA-Public Use
  Company Number: None

PATIENT
  Age: 67 Year
  Sex: Female
  Weight: 94.8 kg

DRUGS (1)
  1. LOVENOX [Suspect]

REACTIONS (3)
  - INJECTION SITE HAEMATOMA [None]
  - OPEN WOUND [None]
  - WOUND HAEMORRHAGE [None]
